FAERS Safety Report 8987846 (Version 1)
Quarter: 2012Q4

REPORT INFORMATION
  Report Type: 
  Country: US (occurrence: US)
  Receive Date: 20121227
  Receipt Date: 20121227
  Transmission Date: 20130627
  Serious: Yes (Other)
  Sender: FDA-Public Use
  Company Number: US-GLAXOSMITHKLINE-A1006226A

PATIENT
  Age: 70 Year
  Sex: Female

DRUGS (12)
  1. ADVAIR [Suspect]
     Indication: CHRONIC OBSTRUCTIVE PULMONARY DISEASE
     Dosage: 1PUFF Twice per day
     Route: 055
     Dates: start: 2002, end: 20121211
  2. DULERA [Suspect]
     Indication: PRODUCT USED FOR UNKNOWN INDICATION
  3. SINGULAR [Concomitant]
  4. VENTOLIN INHALER [Concomitant]
  5. VENTOLIN NEBULIZER [Concomitant]
  6. LEVOTHYROXINE [Concomitant]
  7. LISINOPRIL [Concomitant]
  8. NOVOLOG INSULIN [Concomitant]
  9. INSULIN LANTUS [Concomitant]
  10. CLONAZEPAM [Concomitant]
  11. OXYGEN [Concomitant]
  12. PREDNISONE [Concomitant]

REACTIONS (4)
  - Dyspnoea at rest [Not Recovered/Not Resolved]
  - Respiratory therapy [Unknown]
  - Therapeutic response decreased [Not Recovered/Not Resolved]
  - Drug ineffective [Unknown]
